FAERS Safety Report 7545276-7 (Version None)
Quarter: 2011Q2

REPORT INFORMATION
  Report Type: 
  Country: None (occurrence: None)
  Receive Date: 20110613
  Receipt Date: 20110613
  Transmission Date: 20111010
  Serious: Yes (Hospitalization)
  Sender: FDA-Public Use
  Company Number: None

PATIENT
  Sex: Female
  Weight: 54.4 kg

DRUGS (2)
  1. ERLOTINIB 100MG TABLETS GENENTECH [Suspect]
     Indication: NON-SMALL CELL LUNG CANCER
     Dosage: 100MG  1 TABLET DAILY
     Dates: start: 20101006
  2. BEVACIZUMAB 15MG/KG GENENTECH [Suspect]
     Indication: NON-SMALL CELL LUNG CANCER
     Dosage: 15MG/KGX56.4KG= 846MG
     Dates: start: 20100120, end: 20110511

REACTIONS (2)
  - OEDEMA PERIPHERAL [None]
  - ENTEROCOLITIS INFECTIOUS [None]
